FAERS Safety Report 21417753 (Version 1)
Quarter: 2022Q4

REPORT INFORMATION
  Report Type: Spontaneous
  Country: SA (occurrence: SA)
  Receive Date: 20221006
  Receipt Date: 20221006
  Transmission Date: 20230112
  Serious: Yes (Other)
  Sender: FDA-Public Use
  Company Number: SA-PFIZER INC-PV202200075999

PATIENT
  Sex: Male

DRUGS (1)
  1. ZYVOX [Suspect]
     Active Substance: LINEZOLID
     Indication: Abscess
     Dosage: UNK
     Route: 042

REACTIONS (2)
  - Tongue discolouration [Recovered/Resolved]
  - Pyrexia [Recovered/Resolved]
